FAERS Safety Report 6525656-9 (Version None)
Quarter: 2010Q1

REPORT INFORMATION
  Report Type: 
  Country: None (occurrence: None)
  Receive Date: 20100104
  Receipt Date: 20091228
  Transmission Date: 20100710
  Serious: Yes (Other)
  Sender: FDA-Public Use
  Company Number: US-BRISTOL-MYERS SQUIBB COMPANY-14440853

PATIENT
  Age: 32 Year
  Sex: Female

DRUGS (2)
  1. ABILIFY [Suspect]
     Indication: AFFECTIVE DISORDER
     Route: 048
  2. TEGRETOL [Concomitant]

REACTIONS (2)
  - ABORTION INDUCED [None]
  - PREGNANCY [None]
